FAERS Safety Report 21883881 (Version 1)
Quarter: 2023Q1

REPORT INFORMATION
  Report Type: Spontaneous
  Country: CA (occurrence: CA)
  Receive Date: 20230119
  Receipt Date: 20230119
  Transmission Date: 20230418
  Serious: Yes (Other)
  Sender: FDA-Public Use
  Company Number: None

PATIENT
  Age: 34 Year
  Sex: Female
  Weight: 66 kg

DRUGS (2)
  1. ESCITALOPRAM [Suspect]
     Active Substance: ESCITALOPRAM OXALATE
     Indication: Depression
     Route: 048
  2. BUPROPION [Concomitant]
     Active Substance: BUPROPION
     Dosage: TABLET (EXTENDED- RELEASE)

REACTIONS (10)
  - Burning sensation [Unknown]
  - Decreased appetite [Unknown]
  - Headache [Unknown]
  - Insomnia [Unknown]
  - Muscle spasms [Unknown]
  - Nausea [Unknown]
  - Panic attack [Unknown]
  - Paraesthesia [Unknown]
  - Tremor [Unknown]
  - Vomiting [Unknown]
